FAERS Safety Report 25364043 (Version 1)
Quarter: 2025Q2

REPORT INFORMATION
  Report Type: Spontaneous
  Country: MA (occurrence: MA)
  Receive Date: 20250527
  Receipt Date: 20250527
  Transmission Date: 20250717
  Serious: Yes (Life-Threatening, Hospitalization, Other)
  Sender: PHARMAXIS EUROPE LIMITED
  Company Number: MA-Pharmaxis-001238

PATIENT
  Age: 35 Year
  Sex: Female

DRUGS (1)
  1. MANNITOL [Suspect]
     Active Substance: MANNITOL
     Indication: Brain oedema
     Route: 042

REACTIONS (1)
  - Extradural haematoma [Recovered/Resolved]
